FAERS Safety Report 15655943 (Version 1)
Quarter: 2018Q4

REPORT INFORMATION
  Report Type: Spontaneous
  Country: US (occurrence: US)
  Receive Date: 20181126
  Receipt Date: 20181126
  Transmission Date: 20190205
  Serious: No
  Sender: FDA-Public Use
  Company Number: US-UNICHEM PHARMACEUTICALS (USA) INC-UCM201711-000281

PATIENT
  Sex: Female
  Weight: 80.28 kg

DRUGS (10)
  1. AMLODIPINE BESYLATE 5MG TABLETS [Suspect]
     Active Substance: AMLODIPINE BESYLATE
     Indication: BLOOD PRESSURE MEASUREMENT
     Dates: start: 20170202
  2. OMEGA-3 ACIDS [Concomitant]
     Active Substance: OMEGA-3 FATTY ACIDS
  3. LISINOPRIL. [Concomitant]
     Active Substance: LISINOPRIL
  4. OMEPRAZOLE. [Concomitant]
     Active Substance: OMEPRAZOLE
     Indication: GASTROOESOPHAGEAL REFLUX DISEASE
  5. CARVEDILOL. [Concomitant]
     Active Substance: CARVEDILOL
  6. METFORMIN [Concomitant]
     Active Substance: METFORMIN HYDROCHLORIDE
     Indication: DIABETES MELLITUS
  7. VITAMIN D3 [Concomitant]
     Active Substance: CHOLECALCIFEROL
  8. CARVEDILOL. [Concomitant]
     Active Substance: CARVEDILOL
  9. BABY ASPIRIN [Concomitant]
     Active Substance: ASPIRIN
  10. VITAMIN B12 [Concomitant]
     Active Substance: CYANOCOBALAMIN

REACTIONS (11)
  - Choking [Unknown]
  - Blood pressure increased [Unknown]
  - Dizziness [Not Recovered/Not Resolved]
  - Condition aggravated [Unknown]
  - Pain [Unknown]
  - Nasal dryness [Unknown]
  - Gingival bleeding [Recovering/Resolving]
  - Salivary hypersecretion [Unknown]
  - Feeling abnormal [Unknown]
  - Drug ineffective [Recovered/Resolved]
  - Breast swelling [Unknown]
